FAERS Safety Report 21890420 (Version 1)
Quarter: 2023Q1

REPORT INFORMATION
  Report Type: Spontaneous
  Country: US (occurrence: None)
  Receive Date: 20230119
  Receipt Date: 20230119
  Transmission Date: 20230418
  Serious: No
  Sender: FDA-Public Use
  Company Number: None

PATIENT
  Sex: Female

DRUGS (1)
  1. XULANE [Suspect]
     Active Substance: ETHINYL ESTRADIOL\NORELGESTROMIN

REACTIONS (5)
  - Application site erythema [None]
  - Application site pruritus [None]
  - Application site warmth [None]
  - Application site irritation [None]
  - Application site scar [None]
